FAERS Safety Report 16882424 (Version 1)
Quarter: 2019Q4

REPORT INFORMATION
  Report Type: Spontaneous
  Country: US (occurrence: US)
  Receive Date: 20191003
  Receipt Date: 20191003
  Transmission Date: 20200122
  Serious: Yes (Other)
  Sender: FDA-Public Use
  Company Number: US-JAZZ-JPI-P-031061

PATIENT
  Age: 39 Year
  Sex: Female
  Weight: 50 kg

DRUGS (11)
  1. XYREM [Suspect]
     Active Substance: SODIUM OXYBATE
     Dosage: UNK UNKNOWN, SINGLE
     Route: 048
  2. XYREM [Suspect]
     Active Substance: SODIUM OXYBATE
     Dosage: SINGLE (3.75 GM 1ST DOSE/ 2.5 GM 2ND DOSE)
     Route: 048
     Dates: start: 20121205
  3. DOCUSATE [Concomitant]
     Active Substance: DOCUSATE
     Indication: MINERAL SUPPLEMENTATION
     Dates: start: 201104
  4. BUDESONIDE. [Concomitant]
     Active Substance: BUDESONIDE
     Indication: MULTIPLE ALLERGIES
     Route: 045
  5. ADDERALL [Concomitant]
     Active Substance: AMPHETAMINE ASPARTATE\AMPHETAMINE SULFATE\DEXTROAMPHETAMINE SACCHARATE\DEXTROAMPHETAMINE SULFATE
     Indication: DEPRESSED LEVEL OF CONSCIOUSNESS
     Dates: start: 2009
  6. AZELASTINE HYDROCHLORIDE. [Concomitant]
     Active Substance: AZELASTINE HYDROCHLORIDE
     Indication: MULTIPLE ALLERGIES
     Route: 045
  7. INDAPAMIDE. [Concomitant]
     Active Substance: INDAPAMIDE
     Indication: OEDEMA
     Dates: end: 201302
  8. XYREM [Suspect]
     Active Substance: SODIUM OXYBATE
     Indication: HYPERSOMNIA
     Route: 048
     Dates: start: 20081106
  9. PROPRANOLOL [Suspect]
     Active Substance: PROPRANOLOL HYDROCHLORIDE
     Indication: MIGRAINE
     Dates: end: 201210
  10. SUMATRIPTAN SUCCINATE. [Concomitant]
     Active Substance: SUMATRIPTAN SUCCINATE
     Indication: MIGRAINE
     Dates: start: 201303
  11. FERROUS SULFATE. [Concomitant]
     Active Substance: FERROUS SULFATE
     Indication: SERUM FERRITIN DECREASED
     Dates: start: 201104

REACTIONS (5)
  - Condition aggravated [Unknown]
  - Raynaud^s phenomenon [Unknown]
  - Streptococcal infection [Unknown]
  - Blood pressure increased [Unknown]
  - Tonsillitis [Unknown]

NARRATIVE: CASE EVENT DATE: 201110
